FAERS Safety Report 7669485-1 (Version None)
Quarter: 2011Q3

REPORT INFORMATION
  Report Type: 
  Country: None (occurrence: None)
  Receive Date: 20110808
  Receipt Date: 20110803
  Transmission Date: 20111222
  Serious: Yes (Hospitalization, Other)
  Sender: FDA-Public Use
  Company Number: US-SANOFI-AVENTIS-2011SA049832

PATIENT
  Sex: Male
  Weight: 90 kg

DRUGS (10)
  1. PROAIR HFA [Concomitant]
     Indication: PNEUMOCONIOSIS
     Dosage: DOSE:2 PUFF(S)
  2. LISINOPRIL [Concomitant]
  3. ZOCOR [Concomitant]
  4. PLAVIX [Suspect]
     Route: 048
     Dates: start: 20040101
  5. PLAVIX [Suspect]
     Indication: STENT PLACEMENT
     Route: 048
     Dates: start: 20040101
  6. PROAIR HFA [Concomitant]
     Indication: EMPHYSEMA
     Dosage: DOSE:2 PUFF(S)
  7. COREG [Concomitant]
  8. INSULIN [Concomitant]
  9. FUROSEMIDE [Concomitant]
  10. ALLEGRA [Concomitant]

REACTIONS (6)
  - THROMBOSIS [None]
  - ABDOMINAL PAIN UPPER [None]
  - CEREBROVASCULAR ACCIDENT [None]
  - CARDIAC FAILURE [None]
  - GASTRIC ULCER HAEMORRHAGE [None]
  - MYOCARDIAL INFARCTION [None]
